FAERS Safety Report 7618159-1 (Version None)
Quarter: 2011Q3

REPORT INFORMATION
  Report Type: 
  Country: None (occurrence: None)
  Receive Date: 20110718
  Receipt Date: 20110624
  Transmission Date: 20111222
  Serious: Yes (Death, Hospitalization)
  Sender: FDA-Public Use
  Company Number: US-GLAXOSMITHKLINE-A0806854A

PATIENT
  Age: 72 Year
  Sex: Female
  Weight: 64.1 kg

DRUGS (7)
  1. AVANDIA [Suspect]
     Indication: DIABETES MELLITUS
     Dosage: 8MG AT NIGHT
     Route: 048
     Dates: start: 20030602, end: 20060701
  2. MAXZIDE [Concomitant]
  3. GLUCOTROL [Concomitant]
     Dates: start: 20030602
  4. VERAPAMIL [Concomitant]
  5. FOSAMAX [Concomitant]
  6. CRESTOR [Concomitant]
  7. GLIPIZIDE [Concomitant]

REACTIONS (4)
  - PLEURAL EFFUSION [None]
  - RESPIRATORY FAILURE [None]
  - CARDIAC FAILURE CONGESTIVE [None]
  - MYOCARDIAL INFARCTION [None]
